FAERS Safety Report 9126303 (Version 2)
Quarter: 2013Q3

REPORT INFORMATION
  Report Type: Spontaneous
  Country: US (occurrence: US)
  Receive Date: 20130228
  Receipt Date: 20130715
  Transmission Date: 20140515
  Serious: No
  Sender: FDA-Public Use
  Company Number: US-BIOGENIDEC-2013BI017267

PATIENT
  Age: 47 Year
  Sex: Female

DRUGS (4)
  1. TYSABRI [Suspect]
     Indication: MULTIPLE SCLEROSIS
     Route: 042
  2. TYSABRI [Suspect]
     Indication: MULTIPLE SCLEROSIS
     Route: 042
     Dates: start: 20090505
  3. AVONEX [Concomitant]
     Indication: MULTIPLE SCLEROSIS
     Route: 030
  4. AVONEX [Concomitant]
     Indication: MULTIPLE SCLEROSIS
     Route: 030
     Dates: start: 20051108

REACTIONS (16)
  - Muscular weakness [Unknown]
  - Joint injury [Unknown]
  - Joint dislocation [Recovered/Resolved]
  - Gait disturbance [Recovered/Resolved]
  - Back pain [Unknown]
  - Migraine [Recovered/Resolved]
  - Abasia [Not Recovered/Not Resolved]
  - Fall [Recovered/Resolved]
  - Mobility decreased [Unknown]
  - Balance disorder [Not Recovered/Not Resolved]
  - Optic neuritis [Not Recovered/Not Resolved]
  - Hypoaesthesia [Not Recovered/Not Resolved]
  - Stress [Not Recovered/Not Resolved]
  - Heart rate decreased [Not Recovered/Not Resolved]
  - General symptom [Recovered/Resolved]
  - Multiple sclerosis relapse [Recovered/Resolved]
